FAERS Safety Report 9884335 (Version 2)
Quarter: 2014Q1

REPORT INFORMATION
  Report Type: Spontaneous
  Country: None (occurrence: US)
  Receive Date: 20140210
  Receipt Date: 20140210
  Transmission Date: 20141002
  Serious: No
  Sender: FDA-Public Use
  Company Number: US-ALLERGAN-1315882US

PATIENT
  Sex: Female

DRUGS (2)
  1. BOTOX [Suspect]
     Indication: MIGRAINE
     Dosage: 200 UNITS, SINGLE
     Route: 030
     Dates: start: 20130325, end: 20130325
  2. ZOMIG [Concomitant]
     Indication: MIGRAINE
     Dosage: UNK UNK, PRN

REACTIONS (2)
  - Off label use [Unknown]
  - Dysphagia [Recovered/Resolved]
